FAERS Safety Report 12639457 (Version 1)
Quarter: 2016Q3

REPORT INFORMATION
  Report Type: Spontaneous
  Country: US (occurrence: None)
  Receive Date: 20160809
  Receipt Date: 20160809
  Transmission Date: 20161109
  Serious: Yes (Other)
  Sender: FDA-Public Use
  Company Number: None

PATIENT
  Age: 78 Year
  Sex: Female
  Weight: 68.04 kg

DRUGS (10)
  1. VITAMIN D [Concomitant]
     Active Substance: CHOLECALCIFEROL
  2. BENICAR [Concomitant]
     Active Substance: OLMESARTAN MEDOXOMIL
  3. VITAMIN C [Concomitant]
     Active Substance: ASCORBIC ACID
  4. LOTREL [Concomitant]
     Active Substance: AMLODIPINE BESYLATE\BENAZEPRIL HYDROCHLORIDE
  5. FLUXETINE [Concomitant]
  6. VITAMIN B12 [Concomitant]
     Active Substance: CYANOCOBALAMIN
  7. ICY HOT [Suspect]
     Active Substance: MENTHOL\METHYL SALICYLATE
     Indication: MEDIAL TIBIAL STRESS SYNDROME
     Dosage: APPLIED TO A SURFACE, USUALLY THE SKIN
     Dates: start: 20160807, end: 20160807
  8. APSPIRIN [Concomitant]
  9. CRANBERRY PILLS [Concomitant]
  10. FISH OIL [Concomitant]
     Active Substance: FISH OIL

REACTIONS (2)
  - Dizziness [None]
  - Vomiting [None]

NARRATIVE: CASE EVENT DATE: 20160807
